FAERS Safety Report 11201373 (Version 1)
Quarter: 2015Q2

REPORT INFORMATION
  Report Type: Spontaneous
  Country: FR (occurrence: None)
  Receive Date: 20150617
  Receipt Date: 20150617
  Transmission Date: 20150821
  Serious: Yes (Death, Hospitalization)
  Sender: FDA-Public Use
  Company Number: COR_00315_2015

PATIENT
  Age: 63 Year
  Sex: Female

DRUGS (15)
  1. LOMUSTINE (LOMUSTINE) [Suspect]
     Active Substance: LOMUSTINE
     Indication: ACUTE MYELOID LEUKAEMIA
     Dosage: DF
     Dates: start: 201204
  2. CIPROFLOXACIN. [Concomitant]
     Active Substance: CIPROFLOXACIN
  3. CYTARABINE (CYTARABINE) [Suspect]
     Active Substance: CYTARABINE
     Indication: ACUTE MYELOID LEUKAEMIA
     Dosage: DF
     Dates: start: 201204
  4. DAUNORUBICIN (DAUNORUBICIN) [Suspect]
     Active Substance: DAUNORUBICIN
     Indication: ACUTE MYELOID LEUKAEMIA
     Dosage: DF
     Dates: start: 201204
  5. IDARUBICIN (IDARUBICIN) (IDARUBICIN) [Suspect]
     Active Substance: IDARUBICIN
     Indication: ACUTE MYELOID LEUKAEMIA
     Dosage: DF
     Dates: start: 201204
  6. PIPERACILLIN AND TAZOBACTAM [Concomitant]
     Active Substance: PIPERACILLIN SODIUM\TAZOBACTAM SODIUM
  7. VANCOMYCIN [Concomitant]
     Active Substance: VANCOMYCIN
  8. POSACONAZOLE [Concomitant]
     Active Substance: POSACONAZOLE
  9. METRONIDAZOLE. [Concomitant]
     Active Substance: METRONIDAZOLE
  10. CASPOFUNGIN [Concomitant]
     Active Substance: CASPOFUNGIN
  11. AMIKACIN [Concomitant]
     Active Substance: AMIKACIN
  12. GENTANICIN [Concomitant]
  13. COLISTIN [Concomitant]
     Active Substance: COLISTIN
  14. ANTIBIOTICS [Concomitant]
     Active Substance: UNSPECIFIED INGREDIENT
  15. IMIPENEM [Concomitant]
     Active Substance: IMIPENEM

REACTIONS (3)
  - Organ failure [None]
  - Sepsis [None]
  - Geotrichum infection [None]
